FAERS Safety Report 19031550 (Version 3)
Quarter: 2021Q2

REPORT INFORMATION
  Report Type: Report from Study
  Country: US (occurrence: US)
  Receive Date: 20210319
  Receipt Date: 20210510
  Transmission Date: 20210717
  Serious: Yes (Other)
  Sender: FDA-Public Use
  Company Number: US-EMD SERONO-9225780

PATIENT
  Age: 56 Year
  Sex: Female
  Weight: 71 kg

DRUGS (1)
  1. REBIF [Suspect]
     Active Substance: INTERFERON BETA-1A
     Indication: PRODUCT USED FOR UNKNOWN INDICATION
     Route: 058
     Dates: start: 20161201

REACTIONS (12)
  - Arthropathy [Unknown]
  - Ligamentum flavum hypertrophy [Unknown]
  - Joint range of motion decreased [Unknown]
  - Intervertebral disc degeneration [Unknown]
  - Marrow hyperplasia [Unknown]
  - Facet joint syndrome [Unknown]
  - Tongue eruption [Unknown]
  - Discomfort [Unknown]
  - Myeloproliferative neoplasm [Unknown]
  - Injection site bruising [Unknown]
  - Pain in extremity [Unknown]
  - Visual impairment [Unknown]

NARRATIVE: CASE EVENT DATE: 2021
